FAERS Safety Report 6326115-9 (Version None)
Quarter: 2009Q3

REPORT INFORMATION
  Report Type: 
  Country: None (occurrence: None)
  Receive Date: 20090824
  Receipt Date: 20090820
  Transmission Date: 20100115
  Serious: Yes (Death, Other)
  Sender: FDA-Public Use
  Company Number: PHHY2009CA34895

PATIENT
  Sex: Male

DRUGS (11)
  1. CLOZARIL [Suspect]
     Indication: PSYCHOTIC DISORDER
     Dosage: 100 MG, TID
     Route: 048
     Dates: start: 19980819, end: 20090627
  2. TYLENOL (CAPLET) [Concomitant]
  3. NEXIUM [Concomitant]
  4. COGENTIN [Concomitant]
  5. COLCACE [Concomitant]
  6. FENOFIBRATE [Concomitant]
  7. VALIUM [Concomitant]
  8. FERROUS SULFATE TAB [Concomitant]
  9. MONOCOR [Concomitant]
  10. SYNTHROID [Concomitant]
  11. INDERAL [Concomitant]

REACTIONS (4)
  - ACUTE RESPIRATORY DISTRESS SYNDROME [None]
  - DEATH [None]
  - PNEUMONIA ASPIRATION [None]
  - SEPSIS [None]
